FAERS Safety Report 20343004 (Version 2)
Quarter: 2022Q1

REPORT INFORMATION
  Report Type: Spontaneous
  Country: US (occurrence: US)
  Receive Date: 20220117
  Receipt Date: 20220131
  Transmission Date: 20220423
  Serious: Yes (Life-Threatening, Hospitalization)
  Sender: FDA-Public Use
  Company Number: US-TEVA-2022-US-1997476

PATIENT
  Age: 54 Year
  Sex: Male

DRUGS (10)
  1. AMIODARONE [Interacting]
     Active Substance: AMIODARONE
     Indication: Atrial flutter
     Route: 040
  2. AMIODARONE [Interacting]
     Active Substance: AMIODARONE
     Indication: Cardiogenic shock
     Dosage: 1MG/MINUTE; IV DRIP FOR 6 HOURS
     Route: 041
  3. AMIODARONE [Interacting]
     Active Substance: AMIODARONE
     Dosage: 0.5MG/MINUTE; IV DRIP
     Route: 041
  4. AMIODARONE [Interacting]
     Active Substance: AMIODARONE
     Route: 048
  5. CLOPIDOGREL [Interacting]
     Active Substance: CLOPIDOGREL BISULFATE
     Indication: Cardiogenic shock
     Dosage: 75 MILLIGRAM DAILY;
     Route: 065
  6. APIXABAN [Interacting]
     Active Substance: APIXABAN
     Indication: Cardiogenic shock
     Dosage: 10 MILLIGRAM DAILY;
     Route: 065
  7. HEPARIN [Suspect]
     Active Substance: HEPARIN SODIUM
     Indication: Cardiogenic shock
     Route: 042
  8. ASPIRIN [Interacting]
     Active Substance: ASPIRIN
     Indication: Cardiogenic shock
     Dosage: 81 MILLIGRAM DAILY;
     Route: 065
  9. MILRINONE [Concomitant]
     Active Substance: MILRINONE
     Indication: Cardiogenic shock
     Route: 042
  10. NOREPINEPHRINE [Concomitant]
     Active Substance: NOREPINEPHRINE
     Indication: Cardiogenic shock
     Dosage: IV DRIP
     Route: 041

REACTIONS (4)
  - Pericardial haemorrhage [Recovered/Resolved]
  - Nervous system disorder [Recovered/Resolved]
  - Cardiogenic shock [Recovered/Resolved]
  - Drug interaction [Unknown]
